FAERS Safety Report 16865456 (Version 1)
Quarter: 2019Q3

REPORT INFORMATION
  Report Type: Spontaneous
  Country: US (occurrence: US)
  Receive Date: 20190930
  Receipt Date: 20190930
  Transmission Date: 20191005
  Serious: Yes (Other)
  Sender: FDA-Public Use
  Company Number: US-TEVA-2019-US-1115064

PATIENT
  Sex: Female

DRUGS (1)
  1. FLUOCINONIDE. [Suspect]
     Active Substance: FLUOCINONIDE
     Indication: LICHEN PLANUS
     Route: 065
     Dates: start: 2019

REACTIONS (1)
  - Coeliac disease [Unknown]

NARRATIVE: CASE EVENT DATE: 201903
